FAERS Safety Report 25930402 (Version 1)
Quarter: 2025Q4

REPORT INFORMATION
  Report Type: Spontaneous
  Country: US (occurrence: None)
  Receive Date: 20251016
  Receipt Date: 20251016
  Transmission Date: 20260117
  Serious: No
  Sender: FDA-CTU
  Company Number: None

PATIENT
  Sex: Female

DRUGS (2)
  1. TOBRAMYCIN [Suspect]
     Active Substance: TOBRAMYCIN
     Indication: Lung transplant
     Dosage: TAKE 5 MLS (300 MG TOTAL) BY NEBULIZATION EVERY 12 (TWELVE) HOURS AS DIRECTED FOR 28 DAYS ON THEN 28 DAYS OFF?
     Route: 050
     Dates: start: 20241221
  2. ALENDRONATE [Suspect]
     Active Substance: ALENDRONATE SODIUM

REACTIONS (2)
  - Hospitalisation [None]
  - Therapy interrupted [None]
